APPROVED DRUG PRODUCT: DOVATO
Active Ingredient: DOLUTEGRAVIR SODIUM; LAMIVUDINE
Strength: EQ 50MG BASE;300MG
Dosage Form/Route: TABLET;ORAL
Application: N211994 | Product #001
Applicant: VIIV HEALTHCARE CO
Approved: Apr 8, 2019 | RLD: Yes | RS: Yes | Type: RX

PATENTS:
Patent 11234985 | Expires: Jan 24, 2031
Patent 9242986 | Expires: Dec 8, 2029
Patent 8129385 | Expires: Oct 5, 2027
Patent 8129385*PED | Expires: Apr 5, 2028
Patent 9242986*PED | Expires: Jun 8, 2030

EXCLUSIVITY:
Code: NPP | Date: Apr 5, 2027